FAERS Safety Report 8116177-0 (Version None)
Quarter: 2012Q1

REPORT INFORMATION
  Report Type: 
  Country: None (occurrence: None)
  Receive Date: 20120206
  Receipt Date: 20120202
  Transmission Date: 20120608
  Serious: Yes (Hospitalization, Disabling)
  Sender: FDA-Public Use
  Company Number: US-MERCK-1103USA00964

PATIENT
  Age: 53 Year
  Sex: Female
  Weight: 65 kg

DRUGS (6)
  1. VITAMINS (UNSPECIFIED) [Concomitant]
     Route: 048
     Dates: start: 19990101
  2. ALENDRONATE SODIUM [Suspect]
     Indication: OSTEOPOROSIS
     Route: 048
     Dates: start: 20080918, end: 20090601
  3. FOSAMAX [Suspect]
     Indication: OSTEOPOROSIS
     Route: 048
     Dates: start: 20021101, end: 20090601
  4. CALCIUM (UNSPECIFIED) AND VITAMIN D (UNSPECIFIED) [Concomitant]
     Route: 048
     Dates: start: 19990101
  5. FOSAMAX [Suspect]
     Indication: OSTEOPENIA
     Route: 048
     Dates: start: 20021101, end: 20090601
  6. ALENDRONATE SODIUM [Suspect]
     Indication: OSTEOPENIA
     Route: 048
     Dates: start: 20080918, end: 20090601

REACTIONS (48)
  - SINUSITIS [None]
  - POST PROCEDURAL INFECTION [None]
  - SYNCOPE [None]
  - STRESS URINARY INCONTINENCE [None]
  - FALL [None]
  - LOW TURNOVER OSTEOPATHY [None]
  - CAROTID ARTERIOSCLEROSIS [None]
  - HYPOTHYROIDISM [None]
  - STOMATITIS [None]
  - VITAMIN D DEFICIENCY [None]
  - ADVERSE DRUG REACTION [None]
  - HYPERCHOLESTEROLAEMIA [None]
  - MUSCULOSKELETAL PAIN [None]
  - HERPES ZOSTER [None]
  - WRIST FRACTURE [None]
  - WEIGHT INCREASED [None]
  - URINARY TRACT INFECTION [None]
  - HEADACHE [None]
  - FOOT FRACTURE [None]
  - LIGAMENT SPRAIN [None]
  - MUSCLE SPASMS [None]
  - PAIN OF SKIN [None]
  - SALIVARY GLAND ADENOMA [None]
  - INCISIONAL DRAINAGE [None]
  - FEMUR FRACTURE [None]
  - JOINT SWELLING [None]
  - ARTHRALGIA [None]
  - ILIOTIBIAL BAND SYNDROME [None]
  - SEROMA [None]
  - TOOTHACHE [None]
  - JOINT DISLOCATION [None]
  - HAEMORRHAGIC ANAEMIA [None]
  - BREAST DISORDER [None]
  - POLLAKIURIA [None]
  - DIZZINESS [None]
  - ASTHENIA [None]
  - ARTHROPATHY [None]
  - HYPONATRAEMIA [None]
  - ARTHROPOD BITE [None]
  - INAPPROPRIATE ANTIDIURETIC HORMONE SECRETION [None]
  - MUSCULAR WEAKNESS [None]
  - INSOMNIA [None]
  - DRUG INEFFECTIVE [None]
  - FACIAL PAIN [None]
  - NAUSEA [None]
  - ALOPECIA [None]
  - SOMNOLENCE [None]
  - PAIN IN EXTREMITY [None]
